FAERS Safety Report 9490784 (Version 1)
Quarter: 2013Q3

REPORT INFORMATION
  Report Type: Spontaneous
  Country: US (occurrence: US)
  Receive Date: 20130830
  Receipt Date: 20130830
  Transmission Date: 20140515
  Serious: No
  Sender: FDA-Public Use
  Company Number: US-TEVA-429119USA

PATIENT
  Age: 18 Year
  Sex: Male

DRUGS (1)
  1. NUVIGIL [Suspect]
     Route: 048
     Dates: start: 20130806

REACTIONS (4)
  - Fatigue [Not Recovered/Not Resolved]
  - Hyperhidrosis [Not Recovered/Not Resolved]
  - Headache [Not Recovered/Not Resolved]
  - Anxiety [Unknown]
